FAERS Safety Report 9760653 (Version 1)
Quarter: 2013Q4

REPORT INFORMATION
  Report Type: Spontaneous
  Country: US (occurrence: US)
  Receive Date: 20131216
  Receipt Date: 20131216
  Transmission Date: 20140711
  Serious: No
  Sender: FDA-Public Use
  Company Number: US-BIOGENIDEC-2013BI099954

PATIENT
  Age: 63 Year
  Sex: Female

DRUGS (5)
  1. TECFIDERA [Suspect]
     Indication: MULTIPLE SCLEROSIS
     Route: 048
     Dates: start: 20130719, end: 20130725
  2. TECFIDERA [Suspect]
     Indication: MULTIPLE SCLEROSIS
     Route: 048
     Dates: start: 20130726
  3. PROVIGIL [Concomitant]
     Indication: FATIGUE
  4. COPAXONE [Concomitant]
     Indication: MULTIPLE SCLEROSIS
  5. EXTAVIA [Concomitant]
     Indication: MULTIPLE SCLEROSIS

REACTIONS (2)
  - Flatulence [Not Recovered/Not Resolved]
  - Fatigue [Not Recovered/Not Resolved]
